FAERS Safety Report 18094439 (Version 3)
Quarter: 2020Q3

REPORT INFORMATION
  Report Type: Spontaneous
  Country: US (occurrence: US)
  Receive Date: 20200730
  Receipt Date: 20200825
  Transmission Date: 20201103
  Serious: Yes (Other)
  Sender: FDA-Public Use
  Company Number: US-PFIZER INC-2020192297

PATIENT
  Age: 65 Year
  Sex: Male

DRUGS (1)
  1. LYRICA [Suspect]
     Active Substance: PREGABALIN
     Dosage: UNK

REACTIONS (10)
  - Product physical issue [Unknown]
  - Dyspnoea [Unknown]
  - Neuropathy peripheral [Unknown]
  - Circumstance or information capable of leading to medication error [Unknown]
  - Frustration tolerance decreased [Unknown]
  - Gait disturbance [Unknown]
  - General physical health deterioration [Unknown]
  - Feeling of despair [Unknown]
  - Eye pruritus [Unknown]
  - Withdrawal syndrome [Unknown]
